FAERS Safety Report 14403077 (Version 1)
Quarter: 2018Q1

REPORT INFORMATION
  Report Type: Spontaneous
  Country: US (occurrence: US)
  Receive Date: 20180117
  Receipt Date: 20180117
  Transmission Date: 20180509
  Serious: Yes (Disabling)
  Sender: FDA-Public Use
  Company Number: None

PATIENT
  Age: 58 Year
  Sex: Male

DRUGS (1)
  1. OXYCODONE 15MG MAYNE [Suspect]
     Active Substance: OXYCODONE
     Indication: BREAKTHROUGH PAIN
     Dosage: 1 PILL, 1X3 HOURS, ORALLY
     Route: 048
     Dates: start: 2004, end: 20171108

REACTIONS (5)
  - Headache [None]
  - Abdominal discomfort [None]
  - Feeling jittery [None]
  - Product counterfeit [None]
  - Product physical issue [None]

NARRATIVE: CASE EVENT DATE: 20171128
